FAERS Safety Report 7709094-9 (Version None)
Quarter: 2011Q3

REPORT INFORMATION
  Report Type: 
  Country: None (occurrence: None)
  Receive Date: 20110825
  Receipt Date: 20110810
  Transmission Date: 20111222
  Serious: Yes (Other)
  Sender: FDA-Public Use
  Company Number: PHHY2011BR73033

PATIENT
  Age: 58 Year
  Sex: Male

DRUGS (2)
  1. FORMOTEROL FUMARATE [Suspect]
     Indication: BRONCHITIS
     Dosage: 12/400MCG, ONCE DAILY
  2. EXFORGE [Suspect]
     Indication: HYPERTENSION
     Dosage: 320 MG VALS AND 10 MG AMLO, ONCE AT NIGHT

REACTIONS (4)
  - HYPOPNOEA [None]
  - BLOOD CHOLESTEROL ABNORMAL [None]
  - DIABETES MELLITUS [None]
  - BLOOD GLUCOSE ABNORMAL [None]
